FAERS Safety Report 10150632 (Version 2)
Quarter: 2014Q2

REPORT INFORMATION
  Report Type: Spontaneous
  Country: US (occurrence: US)
  Receive Date: 20140502
  Receipt Date: 20140502
  Transmission Date: 20141212
  Serious: Yes (Other)
  Sender: FDA-Public Use
  Company Number: US-PFIZER INC-2014119825

PATIENT
  Age: 41 Year
  Sex: Female

DRUGS (2)
  1. PRISTIQ [Suspect]
     Indication: ANXIETY
     Dosage: 50 MG, DAILY
     Route: 048
     Dates: start: 20120807, end: 20130215
  2. PRISTIQ [Suspect]
     Dosage: 100 MG, DAILY
     Dates: start: 20130312

REACTIONS (2)
  - Convulsion [Recovered/Resolved]
  - Drug hypersensitivity [Unknown]
